FAERS Safety Report 25401966 (Version 2)
Quarter: 2025Q2

REPORT INFORMATION
  Report Type: Spontaneous
  Country: PL (occurrence: PL)
  Receive Date: 20250605
  Receipt Date: 20250624
  Transmission Date: 20250717
  Serious: Yes (Hospitalization)
  Sender: SANDOZ
  Company Number: PL-ROCHE-10000233353

PATIENT
  Age: 29 Year
  Sex: Male

DRUGS (2)
  1. METHOTREXATE [Suspect]
     Active Substance: METHOTREXATE
     Indication: Still^s disease
     Dosage: 20 MG, QW
     Route: 065
     Dates: start: 2022
  2. TOCILIZUMAB [Suspect]
     Active Substance: TOCILIZUMAB
     Indication: Still^s disease
     Route: 065
     Dates: start: 2022

REACTIONS (13)
  - Pneumothorax [Recovering/Resolving]
  - Respiratory failure [Recovered/Resolved]
  - Varicella zoster pneumonia [Recovering/Resolving]
  - Varicella zoster virus infection [Recovering/Resolving]
  - Immunosuppression [Unknown]
  - Lung abscess [Recovering/Resolving]
  - Empyema [Unknown]
  - Lymphopenia [Unknown]
  - Varicella [Not Recovered/Not Resolved]
  - Leukopenia [Unknown]
  - Pneumonia [Recovered/Resolved]
  - Neutropenia [Unknown]
  - Product use in unapproved indication [Unknown]
